FAERS Safety Report 9443738 (Version 2)
Quarter: 2013Q3

REPORT INFORMATION
  Report Type: Spontaneous
  Country: JP (occurrence: JP)
  Receive Date: 20130806
  Receipt Date: 20130815
  Transmission Date: 20140515
  Serious: Yes (Hospitalization, Other)
  Sender: FDA-Public Use
  Company Number: JP-B.I. PHARMACEUTICALS,INC./RIDGEFIELD-2013-BI-23572GD

PATIENT
  Age: 80 Year
  Sex: Female

DRUGS (2)
  1. MOBIC [Suspect]
     Indication: OSTEOARTHRITIS
     Route: 048
  2. SODIUM HYALURONATE [Suspect]
     Indication: OSTEOARTHRITIS
     Route: 014

REACTIONS (4)
  - Fall [Unknown]
  - Road traffic accident [Unknown]
  - Spinal compression fracture [Recovered/Resolved]
  - Lumbar vertebral fracture [Recovered/Resolved]
